FAERS Safety Report 24168975 (Version 1)
Quarter: 2024Q3

REPORT INFORMATION
  Report Type: Spontaneous
  Country: US (occurrence: None)
  Receive Date: 20240802
  Receipt Date: 20240802
  Transmission Date: 20241016
  Serious: No
  Sender: Public
  Company Number: None

PATIENT
  Age: 57 Year
  Sex: Female

DRUGS (6)
  1. TOBRAMYCIN [Suspect]
     Active Substance: TOBRAMYCIN\TOBRAMYCIN SULFATE
     Indication: Cystic fibrosis
     Dosage: FREQUENCY : TWICE A DAY;?
     Route: 055
     Dates: start: 20240520, end: 20240620
  2. AZITHROMYCIN [Concomitant]
     Active Substance: AZITHROMYCIN
  3. ALBUTEROL [Concomitant]
     Active Substance: ALBUTEROL
  4. TRIKAFTA [Concomitant]
     Active Substance: ELEXACAFTOR\IVACAFTOR\TEZACAFTOR
  5. PULMOZYME [Concomitant]
     Active Substance: DORNASE ALFA
  6. CAYSTON [Concomitant]
     Active Substance: AZTREONAM

REACTIONS (2)
  - Bronchospasm [None]
  - Therapy cessation [None]

NARRATIVE: CASE EVENT DATE: 20240601
